FAERS Safety Report 8430485-5 (Version None)
Quarter: 2012Q2

REPORT INFORMATION
  Report Type: 
  Country: None (occurrence: None)
  Receive Date: 20120323
  Receipt Date: 20110825
  Transmission Date: 20120825
  Serious: Yes (Other)
  Sender: FDA-Public Use
  Company Number: 163-21880-11073112

PATIENT
  Age: 91 Year
  Sex: Female
  Weight: 50.8029 kg

DRUGS (6)
  1. PRILOSEC [Concomitant]
  2. TRANSFUSION (BLOOD TRANSFUSION, AUXILIARY PRODUCT) [Concomitant]
  3. REVLIMID [Suspect]
     Indication: MULTIPLE MYELOMA
     Dosage: 10;5 MG, QD X 21 DAYS, WITH 7 DAY REST, PO
     Dates: start: 20110604
  4. REVLIMID [Suspect]
     Indication: MULTIPLE MYELOMA
     Dosage: 10;5 MG, QD X 21 DAYS, WITH 7 DAY REST, PO
     Dates: start: 20110725
  5. IRON (IRON) [Concomitant]
  6. FOSAMAX (ALENDROANTE SODIUIM) [Concomitant]

REACTIONS (4)
  - WHITE BLOOD CELL COUNT DECREASED [None]
  - PLATELET COUNT DECREASED [None]
  - NEUTROPHIL COUNT DECREASED [None]
  - HAEMOGLOBIN DECREASED [None]
